FAERS Safety Report 4498565-7 (Version None)
Quarter: 2004Q4

REPORT INFORMATION
  Report Type: 
  Country: None (occurrence: None)
  Receive Date: 20041108
  Receipt Date: 20041027
  Transmission Date: 20050328
  Serious: Yes (Hospitalization)
  Sender: FDA-Public Use
  Company Number: 2004242281US

PATIENT
  Age: 36 Year
  Sex: Male
  Weight: 134.7 kg

DRUGS (10)
  1. XANAX [Suspect]
     Dosage: 1.5 MG QID, ORAL
     Route: 048
     Dates: end: 20040801
  2. PEG-INTRON [Suspect]
     Indication: HEPATITIS C
     Dosage: 204 UG ,WEEKLY,  SUBCUTANEOUS
     Route: 058
     Dates: start: 20040319, end: 20040917
  3. ALLEGRA [Concomitant]
  4. REMERON (MIRTHAZAPINE) [Concomitant]
  5. COMPAZINE [Concomitant]
  6. TYLENOL [Concomitant]
  7. ZOLOFT [Concomitant]
  8. SINGULAIR [Concomitant]
  9. XOPENEX [Concomitant]
  10. SPIRIVA [Concomitant]

REACTIONS (14)
  - BLOOD PRESSURE INCREASED [None]
  - CHILLS [None]
  - DRUG WITHDRAWAL SYNDROME [None]
  - DYSKINESIA [None]
  - ERYTHEMA [None]
  - HEART RATE INCREASED [None]
  - MENTAL STATUS CHANGES [None]
  - PHARYNGEAL GONOCOCCAL INFECTION [None]
  - PNEUMONIA KLEBSIELLA [None]
  - POSTOPERATIVE INFECTION [None]
  - SEPSIS [None]
  - STAPHYLOCOCCAL INFECTION [None]
  - TOXICOLOGIC TEST ABNORMAL [None]
  - TREMOR [None]
